FAERS Safety Report 6517272 (Version 7)
Quarter: 2018Q4

REPORT INFORMATION
  Report Type: Spontaneous
  Country: FI (occurrence: FI)
  Receive Date: 20041110
  Receipt Date: 20181026
  Transmission Date: 20190205
  Serious: Yes (Death, Life-Threatening, Hospitalization, Other)
  Sender: FDA-Public Use
  Company Number: FI-PFIZER INC-2004086396

PATIENT
  Age: 76 Year
  Sex: Male

DRUGS (12)
  1. LIPITOR [Interacting]
     Active Substance: ATORVASTATIN CALCIUM
     Indication: LOW DENSITY LIPOPROTEIN INCREASED
  2. WARFARIN [Concomitant]
     Active Substance: WARFARIN
     Route: 048
  3. FUCIDIN (FUSIDIC ACID) [Concomitant]
     Active Substance: FUSIDIC ACID
     Dosage: 1000 MG, 3X/DAY
     Route: 048
  4. BISOPROLOL [Concomitant]
     Active Substance: BISOPROLOL
     Dosage: 5 MG, 1X/DAY
     Route: 048
     Dates: start: 2003
  5. NEXIUM [Concomitant]
     Active Substance: ESOMEPRAZOLE MAGNESIUM
     Dosage: 40 MG, 1X/DAY
     Route: 048
     Dates: start: 2003
  6. PREDNISOLON [Concomitant]
     Active Substance: PREDNISOLONE
     Dosage: 7.5 MG, 1X/DAY
     Route: 048
     Dates: start: 2003
  7. TAVANIC [Concomitant]
     Active Substance: LEVOFLOXACIN
     Route: 048
  8. LIPITOR [Suspect]
     Active Substance: ATORVASTATIN CALCIUM
     Indication: HYPERCHOLESTEROLAEMIA
     Dosage: 40 MG, 1X/DAY
     Route: 048
     Dates: start: 20040507, end: 20040523
  9. DIGOXIN. [Concomitant]
     Active Substance: DIGOXIN
     Dosage: 0.125 MG, 1X/DAY
     Route: 048
     Dates: start: 2003
  10. DIFLUCAN [Interacting]
     Active Substance: FLUCONAZOLE
     Indication: ILL-DEFINED DISORDER
  11. DIFLUCAN [Interacting]
     Active Substance: FLUCONAZOLE
     Indication: PROPHYLAXIS
     Dosage: 150 MG, 1X/DAY
     Route: 048
     Dates: start: 2004, end: 2004
  12. DOXIMYCIN [Concomitant]
     Active Substance: DOXYCYCLINE
     Dosage: 150 MG, 1X/DAY
     Route: 048
     Dates: start: 2003

REACTIONS (15)
  - Pulmonary congestion [Unknown]
  - Multiple organ dysfunction syndrome [Fatal]
  - Hypotonia [Fatal]
  - Blood pressure abnormal [Fatal]
  - Rhabdomyolysis [Unknown]
  - Cardiac failure [Fatal]
  - Cardiomegaly [Unknown]
  - Myocardial infarction [Fatal]
  - Coagulopathy [Fatal]
  - Renal failure [Fatal]
  - Cerebral disorder [Fatal]
  - Drug interaction [Unknown]
  - Tachycardia [Fatal]
  - Myopathy [Unknown]
  - International normalised ratio increased [Unknown]

NARRATIVE: CASE EVENT DATE: 2004
